FAERS Safety Report 20336400 (Version 9)
Quarter: 2022Q2

REPORT INFORMATION
  Report Type: Spontaneous
  Country: US (occurrence: US)
  Receive Date: 20220114
  Receipt Date: 20220624
  Transmission Date: 20220721
  Serious: Yes (Death, Hospitalization, Other)
  Sender: FDA-Public Use
  Company Number: US-CHIESI-2022CHF00085

PATIENT
  Age: 25 Year
  Sex: Male

DRUGS (2)
  1. REVCOVI [Suspect]
     Active Substance: ELAPEGADEMASE-LVLR
     Indication: Combined immunodeficiency
     Dosage: 6.6 MG 2X/WEEK
     Route: 065
     Dates: start: 20210723, end: 2022
  2. LEVOFLOXACIN [Concomitant]
     Active Substance: LEVOFLOXACIN
     Indication: Product used for unknown indication

REACTIONS (10)
  - Death [Fatal]
  - Pneumothorax [Recovered/Resolved]
  - Deep vein thrombosis [Recovered/Resolved]
  - Pneumonia [Recovering/Resolving]
  - Bronchiectasis [Unknown]
  - Condition aggravated [Unknown]
  - Pneumothorax [Not Recovered/Not Resolved]
  - Pneumothorax [Not Recovered/Not Resolved]
  - Unresponsive to stimuli [Not Recovered/Not Resolved]
  - Back pain [Unknown]

NARRATIVE: CASE EVENT DATE: 20211201
